FAERS Safety Report 22258345 (Version 6)
Quarter: 2023Q4

REPORT INFORMATION
  Report Type: Report from Study
  Country: CN (occurrence: CN)
  Receive Date: 20230427
  Receipt Date: 20231227
  Transmission Date: 20240110
  Serious: Yes (Hospitalization, Other)
  Sender: FDA-Public Use
  Company Number: CN-002147023-NVSC2023CN083478

PATIENT
  Age: 36 Year
  Sex: Male
  Weight: 81 kg

DRUGS (5)
  1. COSENTYX [Suspect]
     Active Substance: SECUKINUMAB
     Indication: Psoriasis
     Dosage: 300 MG, QMO (EVERY 4 WEEK)
     Route: 065
     Dates: start: 20220315
  2. COSENTYX [Suspect]
     Active Substance: SECUKINUMAB
     Dosage: 300 MG, QMO (EVERY 4 WEEK)
     Route: 065
     Dates: start: 20230315
  3. COSENTYX [Suspect]
     Active Substance: SECUKINUMAB
     Dosage: 300 MG, QMO (EVERY 4 WEEK)
     Route: 065
     Dates: start: 20230327
  4. COSENTYX [Suspect]
     Active Substance: SECUKINUMAB
     Dosage: 300 MG, QMO (EVERY 4 WEEK)
     Route: 065
     Dates: end: 20230407
  5. MOXIFLOXACIN [Concomitant]
     Active Substance: MOXIFLOXACIN
     Indication: Bacterial infection
     Dosage: 0.4 G (IVGTT)
     Route: 065
     Dates: start: 20230327, end: 20230403

REACTIONS (8)
  - Bronchitis [Recovered/Resolved]
  - Bronchiectasis [Recovered/Resolved]
  - Pulmonary mass [Unknown]
  - White blood cell count increased [Recovered/Resolved]
  - Carboxyhaemoglobin increased [Unknown]
  - Alanine aminotransferase increased [Unknown]
  - Blood triglycerides increased [Unknown]
  - Blood uric acid increased [Unknown]

NARRATIVE: CASE EVENT DATE: 20220527
